FAERS Safety Report 4747946-2 (Version None)
Quarter: 2005Q3

REPORT INFORMATION
  Report Type: 
  Country: None (occurrence: None)
  Receive Date: 20050818
  Receipt Date: 20050808
  Transmission Date: 20060218
  Serious: Yes (Hospitalization, Other)
  Sender: FDA-Public Use
  Company Number: US-ABBOTT-05P-163-0307987-00

PATIENT

DRUGS (3)
  1. VICODIN [Suspect]
     Indication: DRUG EXPOSURE DURING PREGNANCY
  2. BACLOFEN [Suspect]
     Indication: DRUG EXPOSURE DURING PREGNANCY
  3. ETANERCEPT [Suspect]
     Indication: DRUG EXPOSURE DURING PREGNANCY

REACTIONS (7)
  - CONVULSION [None]
  - CONVULSION NEONATAL [None]
  - DRUG EXPOSURE DURING PREGNANCY [None]
  - NEONATAL RESPIRATORY DISTRESS SYNDROME [None]
  - PREMATURE BABY [None]
  - PREMATURE LABOUR [None]
  - RESPIRATORY DISTRESS [None]
